FAERS Safety Report 9374350 (Version 1)
Quarter: 2013Q2

REPORT INFORMATION
  Report Type: Spontaneous
  Country: US (occurrence: None)
  Receive Date: 20130627
  Receipt Date: 20130627
  Transmission Date: 20140414
  Serious: Yes (Other)
  Sender: FDA-Public Use
  Company Number: None

PATIENT
  Age: 48 Year
  Sex: Female
  Weight: 81.8 kg

DRUGS (1)
  1. REMICADE [Suspect]
     Indication: RHEUMATOID ARTHRITIS
     Dosage: 400MG 2ND DOSE IV
     Route: 042
     Dates: start: 20130625

REACTIONS (4)
  - Flushing [None]
  - Nausea [None]
  - Back pain [None]
  - Infusion related reaction [None]
